FAERS Safety Report 6701252 (Version 8)
Quarter: 2013Q4

REPORT INFORMATION
  Report Type: Report from Study
  Country: DE (occurrence: DE)
  Receive Date: 20080716
  Receipt Date: 20131108
  Transmission Date: 20140711
  Serious: Yes (Death, Life-Threatening, Hospitalization, Disabling, Other)
  Sender: FDA-Public Use
  Company Number: DE-ROCHE-574755

PATIENT
  Age: 45 Year
  Sex: Female
  Weight: 79 kg

DRUGS (7)
  1. PEG-INTERFERON ALFA 2A [Suspect]
     Indication: CHRONIC HEPATITIS C
     Route: 058
     Dates: start: 20080214, end: 20080704
  2. RIBAVIRIN [Suspect]
     Indication: CHRONIC HEPATITIS C
     Dosage: DOSING REGIMEN REPORTED AS 600 DAILY
     Route: 048
     Dates: start: 20080602, end: 20080704
  3. OMEPRAZOLE [Suspect]
     Indication: PRODUCT USED FOR UNKNOWN INDICATION
     Dosage: DRUG REPORTED AS OMEPRACOL
     Route: 065
  4. LACTULOSE [Suspect]
     Indication: PRODUCT USED FOR UNKNOWN INDICATION
     Dosage: DRUG REPORTED AS LAKTULOSE
     Route: 065
  5. SPIRONOLACTONE [Suspect]
     Indication: PRODUCT USED FOR UNKNOWN INDICATION
     Route: 065
     Dates: start: 20080619
  6. TORSEMIDE [Suspect]
     Indication: PRODUCT USED FOR UNKNOWN INDICATION
     Route: 065
     Dates: start: 20080619
  7. CETIRIZINE [Concomitant]

REACTIONS (8)
  - Blood urea increased [Unknown]
  - Blood bilirubin increased [Unknown]
  - Prothrombin time prolonged [Unknown]
  - Renal function test abnormal [Not Recovered/Not Resolved]
  - Pneumonia [Unknown]
  - Hepatic encephalopathy [Unknown]
  - Blood creatinine increased [Unknown]
  - Hepatic failure [Unknown]
